FAERS Safety Report 16836378 (Version 1)
Quarter: 2019Q3

REPORT INFORMATION
  Report Type: Spontaneous
  Country: CA (occurrence: CA)
  Receive Date: 20190921
  Receipt Date: 20190921
  Transmission Date: 20191005
  Serious: Yes (Life-Threatening, Other)
  Sender: FDA-Public Use
  Company Number: CA-AUROBINDO-AUR-APL-2019-059989

PATIENT
  Age: 54 Year
  Sex: Male
  Weight: 102 kg

DRUGS (1)
  1. DULOXETINE DELAYED RELEASE CAPSULES [Suspect]
     Active Substance: DULOXETINE
     Indication: FIBROMYALGIA
     Dosage: 30.0 MILLIGRAM, DAILY
     Route: 048

REACTIONS (8)
  - Fatigue [Unknown]
  - Lethargy [Unknown]
  - Paraesthesia [Unknown]
  - Influenza like illness [Unknown]
  - Suicidal ideation [Unknown]
  - Agitation [Unknown]
  - Anger [Unknown]
  - Vertigo [Unknown]
